FAERS Safety Report 5718860-0 (Version None)
Quarter: 2008Q2

REPORT INFORMATION
  Report Type: 
  Country: None (occurrence: None)
  Receive Date: 20080423
  Receipt Date: 20080407
  Transmission Date: 20081010
  Serious: Yes (Hospitalization)
  Sender: FDA-Public Use
  Company Number: 8031479

PATIENT
  Age: 22 Year
  Sex: Male
  Weight: 114 kg

DRUGS (3)
  1. KEPPRA [Suspect]
     Indication: EPILEPSY
     Dosage: 1500 MG 2/D PO
     Route: 048
     Dates: start: 20070814, end: 20070101
  2. KEPPRA [Suspect]
     Indication: EPILEPSY
     Dosage: 4000 MG /D PO
     Route: 048
     Dates: start: 20070101, end: 20071010
  3. VALPROATE SODIUM [Concomitant]

REACTIONS (11)
  - AMNESIA [None]
  - APHASIA [None]
  - AURA [None]
  - DISEASE RECURRENCE [None]
  - DRUG INEFFECTIVE [None]
  - MYOCLONIC EPILEPSY [None]
  - SKIN EXFOLIATION [None]
  - SPEECH DISORDER [None]
  - STATUS EPILEPTICUS [None]
  - VERTIGO [None]
  - VISUAL DISTURBANCE [None]
